FAERS Safety Report 17452158 (Version 1)
Quarter: 2020Q1

REPORT INFORMATION
  Report Type: Spontaneous
  Country: US (occurrence: US)
  Receive Date: 20200224
  Receipt Date: 20200224
  Transmission Date: 20200409
  Serious: Yes (Other)
  Sender: FDA-Public Use
  Company Number: US-GILEAD-2020-0452182

PATIENT
  Age: 45 Year
  Sex: Male
  Weight: 82.2 kg

DRUGS (1)
  1. YESCARTA [Suspect]
     Active Substance: AXICABTAGENE CILOLEUCEL
     Indication: DIFFUSE LARGE B-CELL LYMPHOMA
     Dosage: 1 DOSAGE FORM, ONCE
     Route: 042
     Dates: start: 20191211, end: 20191211

REACTIONS (3)
  - CAR T-cell-related encephalopathy syndrome [Unknown]
  - Cytokine release syndrome [Unknown]
  - Tremor [Unknown]

NARRATIVE: CASE EVENT DATE: 20101221
